FAERS Safety Report 9152191 (Version 1)
Quarter: 2013Q1

REPORT INFORMATION
  Report Type: Spontaneous
  Country: CO (occurrence: CO)
  Receive Date: 20130308
  Receipt Date: 20130308
  Transmission Date: 20140127
  Serious: Yes (Death, Hospitalization)
  Sender: FDA-Public Use
  Company Number: CO-ROCHE-1199872

PATIENT
  Age: 95 Year
  Sex: Female
  Weight: 60 kg

DRUGS (2)
  1. LUCENTIS [Suspect]
     Indication: OPHTHALMOLOGIC TREATMENT
     Dosage: 14/02/2013 LAST INJECTION BEFORE AE.
     Route: 050
  2. EUTHYROX [Concomitant]
     Route: 065

REACTIONS (4)
  - Cardio-respiratory arrest [Fatal]
  - Arrhythmia [Fatal]
  - Pneumonia [Unknown]
  - Pulmonary oedema [Unknown]
